FAERS Safety Report 18497816 (Version 3)
Quarter: 2021Q3

REPORT INFORMATION
  Report Type: Spontaneous
  Country: GB (occurrence: GB)
  Receive Date: 20201112
  Receipt Date: 20210818
  Transmission Date: 20211014
  Serious: Yes (Death, Other)
  Sender: FDA-Public Use
  Company Number: GB-GALDERMA-GB2020048210

PATIENT

DRUGS (1)
  1. DOXYCYCLINE. [Suspect]
     Active Substance: DOXYCYCLINE
     Indication: MALARIA PROPHYLAXIS
     Dosage: 1 DOSAGE FORM
     Route: 065

REACTIONS (10)
  - Intentional product use issue [Recovered/Resolved]
  - Paranoia [Fatal]
  - Delirium [Unknown]
  - Injury [Fatal]
  - Frustration tolerance decreased [Unknown]
  - Anxiety [Unknown]
  - Insomnia [Unknown]
  - Mood swings [Unknown]
  - Psychotic disorder [Unknown]
  - Confusional state [Unknown]

NARRATIVE: CASE EVENT DATE: 201907
